FAERS Safety Report 24368117 (Version 1)
Quarter: 2024Q3

REPORT INFORMATION
  Report Type: Spontaneous
  Country: ES (occurrence: ES)
  Receive Date: 20240926
  Receipt Date: 20240926
  Transmission Date: 20241017
  Serious: Yes (Life-Threatening, Hospitalization)
  Sender: TEVA
  Company Number: None

PATIENT
  Age: 46 Year
  Sex: Female

DRUGS (3)
  1. MYCOPHENOLATE MOFETIL [Suspect]
     Active Substance: MYCOPHENOLATE MOFETIL
     Indication: Systemic lupus erythematosus
     Dosage: MICOFENOLATO DE MOFETILO (7330LM)
     Route: 048
     Dates: start: 202008, end: 20240701
  2. SAPHNELO [Suspect]
     Active Substance: ANIFROLUMAB-FNIA
     Indication: Systemic lupus erythematosus
     Dosage: 1 VIAL OF 2 ML
     Route: 042
     Dates: start: 20230802, end: 20240701
  3. PREDNISONE [Suspect]
     Active Substance: PREDNISONE
     Indication: Immune thrombocytopenia
     Dosage: PREDNISONA (886A)
     Route: 048
     Dates: start: 202008, end: 20240711

REACTIONS (4)
  - Hepatitis B reactivation [Recovering/Resolving]
  - Hepatic cytolysis [Recovering/Resolving]
  - Hypocoagulable state [Recovered/Resolved]
  - Hyperbilirubinaemia [Recovering/Resolving]

NARRATIVE: CASE EVENT DATE: 20240711
